FAERS Safety Report 8394493-5 (Version None)
Quarter: 2012Q2

REPORT INFORMATION
  Report Type: 
  Country: None (occurrence: None)
  Receive Date: 20120530
  Receipt Date: 20120525
  Transmission Date: 20120825
  Serious: Yes (Other)
  Sender: FDA-Public Use
  Company Number: PHHY2012CN045595

PATIENT
  Sex: Female
  Weight: 90 kg

DRUGS (5)
  1. NEORAL [Suspect]
     Dosage: 212.5 MG, (100 MG IN THE MORNING AND 112.5 MG IN THE EVENING)
  2. NEORAL [Suspect]
     Indication: PROPHYLAXIS AGAINST TRANSPLANT REJECTION
     Dosage: UNK UKN, UNK
     Dates: start: 20080722
  3. CELLCEPT [Concomitant]
     Indication: PROPHYLAXIS AGAINST TRANSPLANT REJECTION
     Dosage: 250 MG, UNK
     Dates: start: 20080722
  4. CELLCEPT [Concomitant]
     Dosage: 750 MG, BID
  5. MEDROL [Suspect]
     Indication: PROPHYLAXIS AGAINST TRANSPLANT REJECTION
     Dosage: 4 MG, UNK
     Route: 048
     Dates: start: 20080722, end: 20090501

REACTIONS (3)
  - BLOOD BILIRUBIN INCREASED [None]
  - OSTEONECROSIS [None]
  - PAIN IN EXTREMITY [None]
